FAERS Safety Report 25481836 (Version 1)
Quarter: 2025Q2

REPORT INFORMATION
  Report Type: Spontaneous
  Country: AT (occurrence: AT)
  Receive Date: 20250626
  Receipt Date: 20250626
  Transmission Date: 20250717
  Serious: Yes (Life-Threatening, Hospitalization)
  Sender: CATALYST PHARMA
  Company Number: AT-CATALYSTPHARMACEUTICALPARTNERS-AT-CATA-25-00871

PATIENT
  Age: 24 Year
  Sex: Male

DRUGS (3)
  1. FYCOMPA [Suspect]
     Active Substance: PERAMPANEL
     Indication: Epilepsy
     Dosage: 6.0 MILLIGRAM(S) (6 MILLIGRAM(S), 1 IN 1 DAY)
     Route: 048
  2. FYCOMPA [Suspect]
     Active Substance: PERAMPANEL
     Dosage: 180.0 MILLIGRAM(S) (180 MILLIGRAM(S), 1 IN 1 DAY)
     Route: 048
     Dates: start: 20250617, end: 20250617
  3. LAMOTRIGINE [Concomitant]
     Active Substance: LAMOTRIGINE
     Indication: Epilepsy
     Route: 065

REACTIONS (3)
  - Suspected suicide attempt [Unknown]
  - Unresponsive to stimuli [Unknown]
  - Intentional overdose [Unknown]

NARRATIVE: CASE EVENT DATE: 20250617
